FAERS Safety Report 26126380 (Version 2)
Quarter: 2025Q4

REPORT INFORMATION
  Report Type: Spontaneous
  Country: ID (occurrence: ID)
  Receive Date: 20251205
  Receipt Date: 20251209
  Transmission Date: 20260119
  Serious: Yes (Death, Life-Threatening, Hospitalization, Other)
  Sender: PFIZER
  Company Number: ID-PFIZER INC-202500237379

PATIENT
  Age: 25 Year
  Sex: Female

DRUGS (4)
  1. METHYLPREDNISOLONE SODIUM SUCCINATE [Suspect]
     Active Substance: METHYLPREDNISOLONE SODIUM SUCCINATE
     Indication: Cutaneous T-cell lymphoma stage III
     Dosage: 48 MG, CYCLIC (FOR 5 DAYS)
     Dates: start: 20231104, end: 2023
  2. VINCRISTINE SULFATE [Suspect]
     Active Substance: VINCRISTINE SULFATE
     Indication: Cutaneous T-cell lymphoma stage III
     Dosage: 1.7 MG
     Dates: start: 20231104, end: 2023
  3. CYCLOPHOSPHAMIDE [Suspect]
     Active Substance: CYCLOPHOSPHAMIDE
     Indication: Cutaneous T-cell lymphoma stage III
     Dosage: 900 MG, CYCLIC
     Dates: start: 20231104, end: 2023
  4. DOXORUBICIN [Suspect]
     Active Substance: DOXORUBICIN
     Indication: Cutaneous T-cell lymphoma stage III
     Dosage: 60 MG, CYCLIC
     Dates: start: 20231104, end: 2023

REACTIONS (10)
  - Septic shock [Fatal]
  - Multiple organ dysfunction syndrome [Fatal]
  - Hypoglycaemia [Unknown]
  - Metabolic acidosis [Unknown]
  - Staphylococcal infection [Unknown]
  - Normochromic normocytic anaemia [Unknown]
  - Hypertransaminasaemia [Unknown]
  - Hypoalbuminaemia [Unknown]
  - Hypokalaemia [Unknown]
  - Thrombocytopenia [Unknown]

NARRATIVE: CASE EVENT DATE: 20240101
